FAERS Safety Report 4798976-6 (Version None)
Quarter: 2005Q4

REPORT INFORMATION
  Report Type: 
  Country: None (occurrence: None)
  Receive Date: 20051014
  Receipt Date: 20050207
  Transmission Date: 20060501
  Serious: Yes (Hospitalization)
  Sender: FDA-Public Use
  Company Number: IE-ABBOTT-05P-229-0290594-00

PATIENT
  Sex: Male
  Weight: 73 kg

DRUGS (10)
  1. HUMIRA [Suspect]
     Indication: DRUG USE FOR UNKNOWN INDICATION
     Dates: start: 20021216, end: 20041201
  2. HUMIRA [Suspect]
     Route: 058
     Dates: start: 20041201, end: 20050101
  3. METHOTREXATE [Concomitant]
     Indication: DRUG USE FOR UNKNOWN INDICATION
     Dates: end: 20041201
  4. NILVADIPINE [Concomitant]
     Indication: HYPERTENSION
     Dosage: 4 MG OR 8 MG
  5. ALENDRONATE SODIUM [Concomitant]
     Indication: OSTEOPOROSIS
     Route: 048
     Dates: start: 20021001
  6. MOPIZ [Concomitant]
     Indication: RHEUMATOID ARTHRITIS
     Route: 048
     Dates: start: 20050221
  7. ESOMEPRAZOLE [Concomitant]
     Indication: PROPHYLAXIS AGAINST GASTROINTESTINAL ULCER
     Route: 048
     Dates: start: 20050221
  8. LEKOVIT CA [Concomitant]
     Indication: OSTEOPOROSIS
     Route: 048
     Dates: start: 20021001
  9. NILVADIPINE [Concomitant]
     Indication: BLOOD PRESSURE INCREASED
     Route: 048
     Dates: start: 20030901
  10. QUININE SULFATE [Concomitant]
     Indication: MUSCLE SPASMS
     Route: 048
     Dates: start: 20030901

REACTIONS (4)
  - BLOOD PRESSURE INCREASED [None]
  - GLOSSODYNIA [None]
  - RHEUMATOID ARTHRITIS [None]
  - TONGUE DISORDER [None]
